FAERS Safety Report 5781741-0 (Version None)
Quarter: 2008Q2

REPORT INFORMATION
  Report Type: 
  Country: None (occurrence: None)
  Receive Date: 20080623
  Receipt Date: 20071030
  Transmission Date: 20081010
  Serious: No
  Sender: FDA-Public Use
  Company Number: US-ASTRAZENECA-2007UW25179

PATIENT
  Age: 80 Year
  Sex: Female
  Weight: 49.9 kg

DRUGS (4)
  1. RHINOCORT [Suspect]
     Indication: MULTIPLE ALLERGIES
     Route: 045
     Dates: start: 20071015
  2. NEURONTIN [Concomitant]
  3. RANITIDINE HCL [Concomitant]
  4. ZOLOFT [Concomitant]

REACTIONS (2)
  - ABDOMINAL PAIN UPPER [None]
  - RASH [None]
